FAERS Safety Report 20362389 (Version 3)
Quarter: 2022Q1

REPORT INFORMATION
  Report Type: Spontaneous
  Country: US (occurrence: US)
  Receive Date: 20220121
  Receipt Date: 20220317
  Transmission Date: 20220423
  Serious: No
  Sender: FDA-Public Use
  Company Number: US-ALNYLAM PHARMACEUTICALS, INC.-ALN-2022-000195

PATIENT

DRUGS (4)
  1. ONPATTRO [Suspect]
     Active Substance: PATISIRAN SODIUM
     Indication: Amyloidosis senile
     Dosage: UNK UNK, Q3W
     Route: 042
     Dates: start: 20190111
  2. ONPATTRO [Suspect]
     Active Substance: PATISIRAN SODIUM
     Indication: Cardiomyopathy
  3. TAFAMIDIS [Concomitant]
     Active Substance: TAFAMIDIS
     Indication: Amyloidosis senile
     Dosage: UNK UNK, Q3W
     Dates: start: 20190714
  4. TAFAMIDIS [Concomitant]
     Active Substance: TAFAMIDIS
     Indication: Cardiomyopathy

REACTIONS (27)
  - Trigger finger [Not Recovered/Not Resolved]
  - Nail dystrophy [Unknown]
  - Central venous catheterisation [Unknown]
  - Insomnia [Not Recovered/Not Resolved]
  - Tinnitus [Not Recovered/Not Resolved]
  - Anxiety [Unknown]
  - Anaemia [Unknown]
  - Carpal tunnel syndrome [Not Recovered/Not Resolved]
  - Condition aggravated [Not Recovered/Not Resolved]
  - Cystitis interstitial [Unknown]
  - Constipation [Not Recovered/Not Resolved]
  - Dyspareunia [Recovering/Resolving]
  - Bladder pain [Unknown]
  - Oedema [Unknown]
  - Diabetes mellitus [Unknown]
  - Contusion [Not Recovered/Not Resolved]
  - Tendon rupture [Unknown]
  - Myalgia [Unknown]
  - Vulvovaginal dryness [Unknown]
  - Dizziness [Not Recovered/Not Resolved]
  - Nausea [Unknown]
  - Vomiting [Unknown]
  - Neuropathy peripheral [Not Recovered/Not Resolved]
  - Infusion site extravasation [Unknown]
  - Vertigo [Not Recovered/Not Resolved]
  - Dry eye [Unknown]
  - Dyspnoea [Unknown]

NARRATIVE: CASE EVENT DATE: 20190101
